FAERS Safety Report 16858218 (Version 1)
Quarter: 2019Q3

REPORT INFORMATION
  Report Type: Spontaneous
  Country: GB (occurrence: GB)
  Receive Date: 20190926
  Receipt Date: 20190926
  Transmission Date: 20191005
  Serious: Yes (Disabling, Other)
  Sender: FDA-Public Use
  Company Number: GB-NAPPMUNDI-GBR-2019-0070731

PATIENT
  Age: 65 Year
  Sex: Female
  Weight: 57 kg

DRUGS (4)
  1. CODEINE PHOSPHATE [Concomitant]
     Active Substance: CODEINE PHOSPHATE
  2. BUTEC [Suspect]
     Active Substance: BUPRENORPHINE
     Indication: SCOLIOSIS
     Dosage: 10 MCG, Q1H (STRENGTH 10MG PER PATCH PER WEEK)
     Route: 062
     Dates: start: 20190619, end: 20190620
  3. LATANOPROST. [Concomitant]
     Active Substance: LATANOPROST
  4. COCODAMOL [Concomitant]
     Active Substance: ACETAMINOPHEN\CODEINE PHOSPHATE

REACTIONS (7)
  - Vertigo [Recovered/Resolved]
  - Insomnia [Unknown]
  - Tachyphrenia [Recovered/Resolved]
  - Decreased appetite [Unknown]
  - Vomiting [Recovered/Resolved]
  - Abnormal loss of weight [Unknown]
  - Nausea [Recovered/Resolved]

NARRATIVE: CASE EVENT DATE: 20190619
